FAERS Safety Report 8018910-5 (Version None)
Quarter: 2012Q1

REPORT INFORMATION
  Report Type: 
  Country: None (occurrence: None)
  Receive Date: 20120103
  Receipt Date: 20111229
  Transmission Date: 20120608
  Serious: Yes (Hospitalization)
  Sender: FDA-Public Use
  Company Number: FR-PFIZER INC-2011315667

PATIENT
  Age: 22 Year
  Sex: Female

DRUGS (3)
  1. CYTOTEC [Suspect]
     Indication: ABORTION INDUCED
     Dosage: 200 MG, 4X/DAY
     Route: 048
     Dates: start: 20111201, end: 20111201
  2. CYTOTEC [Suspect]
     Indication: OFF LABEL USE
  3. MIFEPRISTONE (MIFEPREX) [Suspect]
     Indication: ABORTION INDUCED
     Dosage: 200 MG, 3X/DAY
     Route: 048
     Dates: start: 20111129, end: 20111129

REACTIONS (1)
  - DRUG INEFFECTIVE FOR UNAPPROVED INDICATION [None]
